FAERS Safety Report 9228105 (Version 1)
Quarter: 2013Q1

REPORT INFORMATION
  Report Type: Spontaneous
  Country: US (occurrence: None)
  Receive Date: 20121016
  Receipt Date: 20121016
  Transmission Date: 20140127
  Serious: Yes (Hospitalization, Other)
  Sender: FDA-Public Use
  Company Number: 2011029816

PATIENT
  Age: 15 Year
  Sex: Male
  Weight: 40 kg

DRUGS (2)
  1. PRIVIGEN (IMMUNE GLOBULIN INTRAVENOUS (HUMAN) 10% LIQUID) [Suspect]
     Indication: TRANSPLANT REJECTION
     Route: 042
     Dates: start: 20110914
  2. PRIVIGEN (IMMUNE GLOBULIN INTRAVENOUS (HUMAN) 10% LIQUID) [Suspect]
     Indication: HEART TRANSPLANT
     Route: 042
     Dates: start: 20110914

REACTIONS (1)
  - Haemolytic anaemia [None]
